FAERS Safety Report 15339782 (Version 6)
Quarter: 2019Q3

REPORT INFORMATION
  Report Type: Report from Study
  Country: DE (occurrence: DE)
  Receive Date: 20180831
  Receipt Date: 20190926
  Transmission Date: 20191004
  Serious: Yes (Death, Life-Threatening, Hospitalization)
  Sender: FDA-Public Use
  Company Number: PHHY2018DE067029

PATIENT
  Age: 66 Year
  Sex: Female
  Weight: 53 kg

DRUGS (5)
  1. LETROZOLE 1A PHARMA [Suspect]
     Active Substance: LETROZOLE
     Indication: BREAST CANCER METASTATIC
     Dosage: 2.5 MG, QD
     Route: 048
     Dates: start: 20180701, end: 20180804
  2. DEXAMETHASONE. [Concomitant]
     Active Substance: DEXAMETHASONE
     Indication: BREAST CANCER METASTATIC
     Dosage: 4 MG, UNK
     Route: 048
     Dates: start: 2018, end: 201808
  3. DEXAMETHASONE. [Concomitant]
     Active Substance: DEXAMETHASONE
     Indication: METASTASES TO EYE
     Dosage: HIGH DOSES OF DEXAMETHASONE
     Route: 065
  4. KISQALI [Suspect]
     Active Substance: RIBOCICLIB
     Indication: BREAST CANCER METASTATIC
     Dosage: 600 MG, QD
     Route: 048
     Dates: start: 20180701, end: 20180707
  5. LETROZOLE 1A PHARMA [Suspect]
     Active Substance: LETROZOLE
     Indication: METASTASES TO EYE

REACTIONS (11)
  - Blood creatine phosphokinase increased [Fatal]
  - Procalcitonin increased [Fatal]
  - Blood lactate dehydrogenase increased [Fatal]
  - White blood cell count increased [Fatal]
  - Neutrophil count increased [Fatal]
  - Haemoglobin decreased [Fatal]
  - Pneumonia cytomegaloviral [Fatal]
  - C-reactive protein increased [Fatal]
  - Cystitis [Fatal]
  - Dehydration [Fatal]
  - Thrombocytopenia [Fatal]

NARRATIVE: CASE EVENT DATE: 20180801
